FAERS Safety Report 10415382 (Version 9)
Quarter: 2019Q4

REPORT INFORMATION
  Report Type: Report from Study
  Country: GB (occurrence: GB)
  Receive Date: 20140828
  Receipt Date: 20191014
  Transmission Date: 20200122
  Serious: Yes (Hospitalization)
  Sender: FDA-Public Use
  Company Number: GB-NOVOPROD-417854

PATIENT
  Age: 34 Year
  Sex: Female
  Weight: 72 kg

DRUGS (15)
  1. LEVEMIR [Suspect]
     Active Substance: INSULIN DETEMIR
     Dosage: 22 IU, QD
     Route: 058
     Dates: start: 20140812, end: 20140829
  2. NOVORAPID [Suspect]
     Active Substance: INSULIN ASPART
     Dosage: 36 IU, QD
     Route: 058
     Dates: start: 20140702, end: 20140805
  3. NOVORAPID [Suspect]
     Active Substance: INSULIN ASPART
     Dosage: 36 IU, QD
     Route: 058
     Dates: start: 20140806, end: 20140829
  4. LEVEMIR [Suspect]
     Active Substance: INSULIN DETEMIR
     Dosage: 12 IU, QD
     Route: 058
     Dates: start: 20140830
  5. TRAMADOL. [Concomitant]
     Active Substance: TRAMADOL
     Dosage: UNK
     Dates: start: 2014
  6. LEVEMIR [Suspect]
     Active Substance: INSULIN DETEMIR
     Indication: TYPE 1 DIABETES MELLITUS
     Dosage: 12 IU, QD
     Route: 058
     Dates: start: 2008, end: 20140513
  7. LEVEMIR [Suspect]
     Active Substance: INSULIN DETEMIR
     Dosage: 19 IU, QD
     Route: 058
     Dates: start: 20140513, end: 20140701
  8. LEVEMIR [Suspect]
     Active Substance: INSULIN DETEMIR
     Dosage: 18 IU, QD
     Route: 058
     Dates: start: 20140702, end: 20140811
  9. NOVORAPID [Suspect]
     Active Substance: INSULIN ASPART
     Dosage: 30 IU, QD
     Route: 058
     Dates: start: 20140830
  10. FOLIC ACID. [Concomitant]
     Active Substance: FOLIC ACID
     Indication: PROPHYLAXIS
     Dosage: UNK
     Dates: start: 2014
  11. CEPHRADINE [Concomitant]
     Active Substance: CEPHRADINE
     Dosage: UNK
     Dates: start: 2014
  12. ASPIRIN. [Concomitant]
     Active Substance: ASPIRIN
     Dosage: UNK
     Dates: start: 20140815, end: 20140815
  13. OMEPRAZOLE. [Concomitant]
     Active Substance: OMEPRAZOLE
     Indication: PROPHYLAXIS
     Dosage: UNK
     Dates: start: 20140812, end: 20140828
  14. NOVORAPID [Suspect]
     Active Substance: INSULIN ASPART
     Indication: TYPE 1 DIABETES MELLITUS
     Dosage: 34 IU, QD
     Route: 058
     Dates: start: 2008, end: 20140701
  15. CITALOPRAM [Concomitant]
     Active Substance: CITALOPRAM HYDROBROMIDE
     Dosage: UNK
     Dates: start: 2014

REACTIONS (6)
  - Vitreous haemorrhage [Recovering/Resolving]
  - Vomiting [Recovered/Resolved]
  - Vomiting [Recovered/Resolved]
  - Maternal exposure during pregnancy [Recovered/Resolved]
  - Urine analysis abnormal [Recovered/Resolved]
  - Diabetic ketoacidosis [Recovered/Resolved]

NARRATIVE: CASE EVENT DATE: 20140121
